FAERS Safety Report 5437373-7 (Version None)
Quarter: 2007Q3

REPORT INFORMATION
  Report Type: 
  Country: None (occurrence: None)
  Receive Date: 20070831
  Receipt Date: 20070823
  Transmission Date: 20080115
  Serious: Yes (Hospitalization, Other)
  Sender: FDA-Public Use
  Company Number: HQWYE793724AUG07

PATIENT
  Age: 72 Year
  Sex: Male
  Weight: 72 kg

DRUGS (18)
  1. AMIODARONE [Interacting]
     Indication: ATRIAL FIBRILLATION
     Route: 065
  2. AMIODARONE [Interacting]
     Route: 065
  3. AMIODARONE [Interacting]
     Dosage: DOSE UNKNOWN
     Route: 065
  4. STAVUDINE [Concomitant]
     Indication: HIV INFECTION
     Route: 065
  5. STAVUDINE [Concomitant]
     Dosage: DOSE UNKNOWN
     Route: 065
  6. DELAVIRDINE [Suspect]
     Indication: HIV INFECTION
     Route: 065
  7. DELAVIRDINE [Suspect]
     Dosage: DOSE UNKNOWN
     Route: 065
  8. SIMVASTATIN [Interacting]
     Route: 065
  9. ISOSORBIDE MONONITRATE [Concomitant]
     Route: 065
  10. DOCUSATE [Concomitant]
     Route: 065
  11. ASPIRIN [Concomitant]
     Route: 065
  12. METOPROLOL SUCCINATE [Concomitant]
     Route: 065
  13. TERAZOSIN HCL [Concomitant]
     Route: 065
  14. FAMOTIDINE [Concomitant]
     Route: 065
  15. MACROGOL [Concomitant]
     Route: 065
  16. ATAZANAVIR SULFATE [Interacting]
     Indication: HIV INFECTION
     Route: 065
  17. ATAZANAVIR SULFATE [Interacting]
     Dosage: UNKNOWN DOSE
     Route: 065
  18. CLOPIDOGREL [Concomitant]
     Route: 065

REACTIONS (3)
  - DRUG INTERACTION [None]
  - RENAL FAILURE ACUTE [None]
  - RHABDOMYOLYSIS [None]
